FAERS Safety Report 9097461 (Version 1)
Quarter: 2013Q1

REPORT INFORMATION
  Report Type: Spontaneous
  Country: US (occurrence: US)
  Receive Date: 20130212
  Receipt Date: 20130212
  Transmission Date: 20140127
  Serious: Yes (Hospitalization)
  Sender: FDA-Public Use
  Company Number: US-ELI_LILLY_AND_COMPANY-US201302000943

PATIENT
  Sex: Female

DRUGS (15)
  1. FORTEO [Suspect]
     Indication: OSTEOPOROSIS
     Dosage: 20 UG, QD
     Dates: start: 20121203
  2. LASIX [Concomitant]
  3. COUMADIN [Concomitant]
  4. DIOVAN [Concomitant]
  5. GABAPENTINE [Concomitant]
  6. IRON [Concomitant]
  7. MULTIVITAMIN [Concomitant]
  8. POTASSIUM [Concomitant]
  9. SIMVASTATINE [Concomitant]
  10. VITAMIN D [Concomitant]
  11. METFORMIN [Concomitant]
  12. AMLODIPINE [Concomitant]
  13. LACTITOL [Concomitant]
  14. COREG [Concomitant]
  15. AMIODARONE [Concomitant]

REACTIONS (1)
  - Cardiac failure congestive [Unknown]
